FAERS Safety Report 7374661-1 (Version None)
Quarter: 2011Q1

REPORT INFORMATION
  Report Type: 
  Country: None (occurrence: None)
  Receive Date: 20110325
  Receipt Date: 20100628
  Transmission Date: 20110831
  Serious: No
  Sender: FDA-Public Use
  Company Number: US-MYLANLABS-2010S1011587

PATIENT
  Age: 73 Year
  Sex: Female
  Weight: 61.24 kg

DRUGS (10)
  1. FENTANYL-100 [Suspect]
     Indication: BACK PAIN
     Dosage: CHANGED Q48H
     Route: 062
     Dates: start: 20091101
  2. CLIMARA PRO [Suspect]
     Route: 062
     Dates: start: 20100101
  3. RESTORIL [Concomitant]
  4. CELEBREX [Suspect]
     Indication: ARTHRITIS
     Dates: start: 20100101
  5. HYZAAR [Concomitant]
     Indication: BLOOD PRESSURE
     Dosage: 50/12.5MG
  6. ASPIRIN [Concomitant]
  7. CLIMARA PRO [Suspect]
     Indication: HORMONE REPLACEMENT THERAPY
     Route: 062
     Dates: start: 20100101
  8. ACIPHEX [Concomitant]
  9. WELLBUTRIN [Concomitant]
  10. MULTIVITAMIN [Concomitant]

REACTIONS (1)
  - ALOPECIA [None]
